FAERS Safety Report 19410912 (Version 1)
Quarter: 2021Q2

REPORT INFORMATION
  Report Type: Spontaneous
  Country: GB (occurrence: GB)
  Receive Date: 20210614
  Receipt Date: 20210614
  Transmission Date: 20210717
  Serious: No
  Sender: FDA-Public Use
  Company Number: GB-ALKEM LABORATORIES LIMITED-GB-ALKEM-2021-01125

PATIENT

DRUGS (4)
  1. SOLIFENACIN [Suspect]
     Active Substance: SOLIFENACIN
     Indication: PRODUCT USED FOR UNKNOWN INDICATION
     Dosage: UNK
     Route: 065
  2. APIXABAN [Concomitant]
     Active Substance: APIXABAN
     Indication: PRODUCT USED FOR UNKNOWN INDICATION
     Dosage: 1 TABLET TWICE DAILY NOTES FOR PATIENT: PLEASE ARRANGE BLOOD TEST
     Route: 065
     Dates: start: 20201230
  3. APIXABAN [Concomitant]
     Active Substance: APIXABAN
     Dosage: 1 TABLET TWICE DAILY
     Route: 065
     Dates: start: 20210129
  4. APIXABAN [Concomitant]
     Active Substance: APIXABAN
     Dosage: 1 TABLET TWICE DAILY NOTES FOR PATIENT: PLEASE ARRANGE BLOOD TEST
     Route: 065
     Dates: start: 20201204, end: 20210129

REACTIONS (1)
  - Dry mouth [Recovered/Resolved]
